FAERS Safety Report 6219228-3 (Version None)
Quarter: 2009Q2

REPORT INFORMATION
  Report Type: 
  Country: None (occurrence: None)
  Receive Date: 20090605
  Receipt Date: 20090605
  Transmission Date: 20091009
  Serious: Yes (Other)
  Sender: FDA-Public Use
  Company Number: None

PATIENT
  Age: 38 Year
  Sex: Female
  Weight: 63.5036 kg

DRUGS (2)
  1. LEXAPRO [Suspect]
     Indication: ANXIETY
     Dosage: 20MG BID PO
     Route: 048
     Dates: start: 20060228, end: 20090608
  2. LEXAPRO [Suspect]
     Indication: MENOPAUSAL SYMPTOMS
     Dosage: 20MG BID PO
     Route: 048
     Dates: start: 20060228, end: 20090608

REACTIONS (3)
  - ABNORMAL BEHAVIOUR [None]
  - AMNESIA [None]
  - PERSONALITY CHANGE [None]
